FAERS Safety Report 15366618 (Version 1)
Quarter: 2018Q3

REPORT INFORMATION
  Report Type: Spontaneous
  Country: US (occurrence: US)
  Receive Date: 20180910
  Receipt Date: 20180910
  Transmission Date: 20181010
  Serious: No
  Sender: FDA-Public Use
  Company Number: US-GLAXOSMITHKLINE-US2018157045

PATIENT
  Age: 90 Year
  Sex: Male

DRUGS (2)
  1. COREG CR [Suspect]
     Active Substance: CARVEDILOL PHOSPHATE
     Indication: ATRIAL FIBRILLATION
     Dosage: 40 MG, 1D
     Dates: start: 2000
  2. COREG CR [Suspect]
     Active Substance: CARVEDILOL PHOSPHATE
     Dosage: 20 MG, 1D

REACTIONS (3)
  - Expired product administered [Unknown]
  - Balance disorder [Recovered/Resolved]
  - Fall [Recovered/Resolved]

NARRATIVE: CASE EVENT DATE: 20180403
